FAERS Safety Report 19239931 (Version 1)
Quarter: 2021Q2

REPORT INFORMATION
  Report Type: Spontaneous
  Country: FI (occurrence: FI)
  Receive Date: 20210511
  Receipt Date: 20210511
  Transmission Date: 20210717
  Serious: Yes (Hospitalization)
  Sender: FDA-Public Use
  Company Number: FI-JNJFOC-20210512988

PATIENT
  Age: 72 Year
  Sex: Male

DRUGS (1)
  1. RISPERDAL [Suspect]
     Active Substance: RISPERIDONE
     Indication: BEHAVIOUR DISORDER
     Dosage: 1,MG,DAILY
     Route: 048
     Dates: start: 20210311, end: 20210411

REACTIONS (3)
  - Hemiparesis [Recovering/Resolving]
  - Intracranial aneurysm [Recovering/Resolving]
  - Cerebral artery thrombosis [Recovering/Resolving]

NARRATIVE: CASE EVENT DATE: 20210411
